FAERS Safety Report 16048825 (Version 2)
Quarter: 2019Q1

REPORT INFORMATION
  Report Type: Spontaneous
  Country: FR (occurrence: FR)
  Receive Date: 20190307
  Receipt Date: 20190325
  Transmission Date: 20190418
  Serious: Yes (Other)
  Sender: FDA-Public Use
  Company Number: PHHY2019FR047056

PATIENT

DRUGS (2)
  1. RISEDRONATE SODIUM. [Suspect]
     Active Substance: RISEDRONATE SODIUM
     Indication: FOETAL EXPOSURE DURING PREGNANCY
     Route: 064
  2. METHOTREXATE. [Suspect]
     Active Substance: METHOTREXATE
     Indication: FOETAL EXPOSURE DURING PREGNANCY
     Route: 064

REACTIONS (3)
  - Premature baby [Unknown]
  - Foetal distress syndrome [Unknown]
  - Foetal exposure during pregnancy [Unknown]
